FAERS Safety Report 5532260-8 (Version None)
Quarter: 2007Q4

REPORT INFORMATION
  Report Type: 
  Country: None (occurrence: None)
  Receive Date: 20071130
  Receipt Date: 20071130
  Transmission Date: 20080405
  Serious: No
  Sender: FDA-Public Use
  Company Number: None

PATIENT

DRUGS (2)
  1. EFFEXOR [Suspect]
  2. PROZAC [Suspect]

REACTIONS (1)
  - SEROTONIN SYNDROME [None]
